FAERS Safety Report 5133924-0 (Version None)
Quarter: 2006Q4

REPORT INFORMATION
  Report Type: 
  Country: None (occurrence: None)
  Receive Date: 20061023
  Receipt Date: 20061023
  Transmission Date: 20070319
  Serious: Yes (Life-Threatening)
  Sender: FDA-Public Use
  Company Number: None

PATIENT
  Sex: Female
  Weight: 49.9 kg

DRUGS (4)
  1. OMNISCAN [Suspect]
     Indication: PAIN IN EXTREMITY
     Dosage: 30 CC   1    IV BOLUS
     Route: 040
     Dates: start: 20050808, end: 20050808
  2. OMNISCAN [Suspect]
     Indication: RENAL FAILURE CHRONIC
     Dosage: 30 CC   1    IV BOLUS
     Route: 040
     Dates: start: 20050808, end: 20050808
  3. OMNISCAN [Suspect]
     Indication: SCLERODERMA
     Dosage: 30 CC   1    IV BOLUS
     Route: 040
     Dates: start: 20050808, end: 20050808
  4. OMNISCAN [Suspect]
     Indication: TRANSPLANT FAILURE
     Dosage: 30 CC   1    IV BOLUS
     Route: 040
     Dates: start: 20050808, end: 20050808

REACTIONS (2)
  - FIBROSIS [None]
  - NEPHROGENIC FIBROSING DERMOPATHY [None]
